FAERS Safety Report 8463252-7 (Version None)
Quarter: 2012Q2

REPORT INFORMATION
  Report Type: 
  Country: None (occurrence: None)
  Receive Date: 20120620
  Receipt Date: 20120611
  Transmission Date: 20120825
  Serious: Yes (Other)
  Sender: FDA-Public Use
  Company Number: ADR-2012-00501

PATIENT
  Sex: Female

DRUGS (2)
  1. BACLOFEN [Suspect]
     Indication: CEREBRAL PALSY
  2. BACLOFEN [Suspect]
     Indication: MUSCLE SPASTICITY

REACTIONS (9)
  - URINARY TRACT INFECTION [None]
  - INSOMNIA [None]
  - DIZZINESS [None]
  - DRUG EFFECT DECREASED [None]
  - DIPLOPIA [None]
  - SEROMA [None]
  - GAIT DISTURBANCE [None]
  - PSEUDOMONAS INFECTION [None]
  - PARAESTHESIA [None]
